FAERS Safety Report 4567885-X (Version None)
Quarter: 2005Q1

REPORT INFORMATION
  Report Type: 
  Country: None (occurrence: None)
  Receive Date: 20050202
  Receipt Date: 20041214
  Transmission Date: 20050727
  Serious: No
  Sender: FDA-Public Use
  Company Number: US-GLAXOSMITHKLINE-A0537253A

PATIENT
  Age: 62 Year
  Sex: Female

DRUGS (7)
  1. AVANDAMET [Suspect]
     Dosage: 4MG PER DAY
     Route: 048
     Dates: start: 20040401
  2. ELAVIL [Concomitant]
  3. UNKNOWN MEDICATION [Concomitant]
  4. CELEXA [Concomitant]
  5. DETROL [Concomitant]
  6. CRESTOR [Concomitant]
     Dosage: 1U AT NIGHT
  7. PYRIDIUM [Concomitant]

REACTIONS (1)
  - WHITE BLOOD CELL COUNT DECREASED [None]
